FAERS Safety Report 20762585 (Version 3)
Quarter: 2022Q2

REPORT INFORMATION
  Report Type: Spontaneous
  Country: JP (occurrence: JP)
  Receive Date: 20220428
  Receipt Date: 20220526
  Transmission Date: 20220721
  Serious: Yes (Hospitalization)
  Sender: FDA-Public Use
  Company Number: JP-KYOWAKIRIN-2021AKK003505

PATIENT
  Age: 76 Year
  Sex: Female

DRUGS (15)
  1. DARBEPOETIN ALFA [Suspect]
     Active Substance: DARBEPOETIN ALFA
     Indication: Nephrogenic anaemia
     Dosage: 30 MICROGRAM
     Route: 058
     Dates: start: 20200722, end: 20200826
  2. DARBEPOETIN ALFA [Suspect]
     Active Substance: DARBEPOETIN ALFA
     Dosage: 60 MICROGRAM, QMO
     Route: 058
     Dates: start: 20200930
  3. DARBEPOETIN ALFA [Suspect]
     Active Substance: DARBEPOETIN ALFA
     Dosage: 120 MICROGRAM
     Route: 058
     Dates: end: 202102
  4. DAPRODUSTAT [Suspect]
     Active Substance: DAPRODUSTAT
     Indication: Nephrogenic anaemia
     Dosage: 2 MILLIGRAM, QD
     Route: 048
     Dates: start: 20210826, end: 20211020
  5. DAPRODUSTAT [Suspect]
     Active Substance: DAPRODUSTAT
     Dosage: 4 MILLIGRAM
     Route: 048
     Dates: start: 20220125, end: 20220404
  6. AMLODIPINE BESYLATE [Concomitant]
     Active Substance: AMLODIPINE BESYLATE
     Indication: Hypertension
     Dosage: 5 MILLIGRAM, BID
     Route: 048
     Dates: start: 20200623, end: 202102
  7. AMLODIPINE BESYLATE [Concomitant]
     Active Substance: AMLODIPINE BESYLATE
     Dosage: 5 MILLIGRAM, BID
     Route: 048
  8. METHYLCOBALAMIN [Concomitant]
     Active Substance: METHYLCOBALAMIN
     Dosage: UNK
     Route: 048
     Dates: start: 20200623, end: 202102
  9. CALONAL [Concomitant]
     Active Substance: ACETAMINOPHEN
     Dosage: UNK, PRN
     Route: 048
     Dates: start: 20200623, end: 202102
  10. URSODIOL [Concomitant]
     Active Substance: URSODIOL
     Indication: Drug-induced liver injury
     Dosage: 100 MG, TID
     Route: 048
     Dates: start: 20200202, end: 202102
  11. URSODIOL [Concomitant]
     Active Substance: URSODIOL
     Dosage: 100 MG, TID
     Route: 048
  12. AMMONIUM GLYCYRRHIZATE\GLYCINE\RACEMETHIONINE [Concomitant]
     Active Substance: AMMONIUM GLYCYRRHIZATE\GLYCINE\RACEMETHIONINE
     Indication: Drug-induced liver injury
     Dosage: 2 DOSAGE FORM, TID
     Route: 048
     Dates: start: 20200202, end: 202102
  13. AMMONIUM GLYCYRRHIZATE\GLYCINE\RACEMETHIONINE [Concomitant]
     Active Substance: AMMONIUM GLYCYRRHIZATE\GLYCINE\RACEMETHIONINE
     Dosage: 2 DOSAGE FORM, TID
     Route: 048
  14. SODIUM BICARBONATE [Concomitant]
     Active Substance: SODIUM BICARBONATE
     Indication: Chronic kidney disease
     Dosage: 1500 MILLIGRAM, TID
     Route: 048
     Dates: start: 20200219, end: 202102
  15. SODIUM BICARBONATE [Concomitant]
     Active Substance: SODIUM BICARBONATE
     Dosage: 1500 MILLIGRAM, TID
     Route: 048

REACTIONS (5)
  - Humerus fracture [Recovered/Resolved]
  - Liver disorder [Recovered/Resolved]
  - Liver disorder [Recovered/Resolved]
  - Fall [Unknown]
  - Prescribed underdose [Unknown]

NARRATIVE: CASE EVENT DATE: 20210129
